FAERS Safety Report 5242970-8 (Version None)
Quarter: 2007Q1

REPORT INFORMATION
  Report Type: 
  Country: None (occurrence: None)
  Receive Date: 20070215
  Receipt Date: 20070201
  Transmission Date: 20070707
  Serious: Yes (Other)
  Sender: FDA-Public Use
  Company Number: 2007SP002003

PATIENT
  Age: 9 Year
  Sex: Female

DRUGS (1)
  1. INTRON A [Suspect]
     Indication: LARYNGEAL PAPILLOMA

REACTIONS (2)
  - DEMYELINATION [None]
  - MULTIPLE SCLEROSIS [None]
